FAERS Safety Report 6627022-4 (Version None)
Quarter: 2010Q1

REPORT INFORMATION
  Report Type: 
  Country: None (occurrence: None)
  Receive Date: 20100311
  Receipt Date: 20091216
  Transmission Date: 20100710
  Serious: No
  Sender: FDA-Public Use
  Company Number: US-KINGPHARMUSA00001-K200901584

PATIENT
  Age: 35 Year
  Sex: Male
  Weight: 86.168 kg

DRUGS (3)
  1. EMBEDA [Suspect]
     Indication: NEURALGIA
     Dosage: 60 MG, BID
     Route: 048
     Dates: start: 20091214
  2. CYMBALTA [Concomitant]
     Indication: NEUROPATHY PERIPHERAL
     Dosage: UNK
  3. DOXYCYCLINE [Concomitant]
     Indication: ACNE
     Dosage: UNK

REACTIONS (2)
  - DYSURIA [None]
  - PRURITUS [None]
